FAERS Safety Report 9625679 (Version 1)
Quarter: 2013Q4

REPORT INFORMATION
  Report Type: Spontaneous
  Country: US (occurrence: None)
  Receive Date: 20131015
  Receipt Date: 20131015
  Transmission Date: 20140711
  Serious: Yes (Other)
  Sender: FDA-Public Use
  Company Number: None

PATIENT
  Age: 5 Year
  Sex: Female
  Weight: 20.3 kg

DRUGS (1)
  1. EXIDINE [Suspect]
     Indication: PREOPERATIVE CARE
     Dosage: 4 OUNCES, ONCE, SKIN PREP
     Dates: start: 20130909

REACTIONS (3)
  - Bacterial infection [None]
  - Culture positive [None]
  - Product contamination microbial [None]
